FAERS Safety Report 10051688 (Version 2)
Quarter: 2014Q2

REPORT INFORMATION
  Report Type: Spontaneous
  Country: US (occurrence: None)
  Receive Date: 20140331
  Receipt Date: 20140425
  Transmission Date: 20141212
  Serious: Yes (Death)
  Sender: FDA-Public Use
  Company Number: UTC-046339

PATIENT
  Age: 75 Year
  Sex: Female
  Weight: 100.7 kg

DRUGS (3)
  1. REMODULIN [Suspect]
     Indication: PULMONARY ARTERIAL HYPERTENSION
     Dosage: 73.44 UG/KG (0.051 UG/KG, 1 IN 1 MIN), SUBCUTANEOUS
     Dates: start: 20111018, end: 20140317
  2. REVATIO (SILDENAFIL CITRATE) [Concomitant]
  3. LASIX (FUROSEMIDE) [Concomitant]

REACTIONS (1)
  - Death [None]
